FAERS Safety Report 7070580-9 (Version None)
Quarter: 2010Q4

REPORT INFORMATION
  Report Type: 
  Country: None (occurrence: None)
  Receive Date: 20101027
  Receipt Date: 20101027
  Transmission Date: 20110411
  Serious: No
  Sender: FDA-Public Use
  Company Number: None

PATIENT
  Age: 6 Month
  Sex: Female
  Weight: 6.3504 kg

DRUGS (1)
  1. HYLANDS TEETHING TABLETS NONE HYLANDS INC [Suspect]
     Dosage: 2T

REACTIONS (3)
  - PRODUCT QUALITY ISSUE [None]
  - SCREAMING [None]
  - SOMNOLENCE [None]
